FAERS Safety Report 16199049 (Version 1)
Quarter: 2019Q2

REPORT INFORMATION
  Report Type: Report from Study
  Country: DE (occurrence: DE)
  Receive Date: 20190415
  Receipt Date: 20190415
  Transmission Date: 20190711
  Serious: Yes (Hospitalization)
  Sender: FDA-Public Use
  Company Number: DE-PFIZER INC-2019153038

PATIENT
  Age: 68 Year
  Sex: Male

DRUGS (15)
  1. LANTAREL [Suspect]
     Active Substance: METHOTREXATE SODIUM
     Indication: RHEUMATOID ARTHRITIS
     Dosage: 22.5 MG, WEEKLY
  2. ANTRA [OMEPRAZOLE] [Concomitant]
     Active Substance: OMEPRAZOLE
     Dosage: ^ANTRA MUPS^
  3. DELIX [RAMIPRIL] [Concomitant]
  4. SIMVABETA [Concomitant]
     Active Substance: SIMVASTATIN
  5. QUENSYL [Suspect]
     Active Substance: HYDROXYCHLOROQUINE
     Indication: RHEUMATOID ARTHRITIS
     Dosage: 400 MG, DAILY
  6. ALLO CT [Concomitant]
  7. DECORTIN [Concomitant]
     Active Substance: PREDNISONE
  8. FOLSAN [Concomitant]
     Active Substance: FOLIC ACID
  9. BELOC ZOK [Concomitant]
     Active Substance: METOPROLOL SUCCINATE
  10. NITROLINGUAL [Concomitant]
     Active Substance: NITROGLYCERIN
     Dosage: ^NITROLINGUAL SPRAY^
  11. NOVALGIN (METAMIZOLE SODIUM) [Concomitant]
     Active Substance: METAMIZOLE SODIUM
  12. NO SUBJECT DRUG [Suspect]
     Active Substance: UNSPECIFIED INGREDIENT
  13. ASPIRINE [Concomitant]
     Active Substance: ASPIRIN
  14. GABAGAMMA [Concomitant]
     Active Substance: GABAPENTIN
  15. CORVATON [Concomitant]
     Active Substance: MOLSIDOMINE

REACTIONS (2)
  - Salmonella sepsis [Recovered/Resolved]
  - Splenic infarction [Recovered/Resolved]

NARRATIVE: CASE EVENT DATE: 20180801
